FAERS Safety Report 7071273-4 (Version None)
Quarter: 2010Q4

REPORT INFORMATION
  Report Type: 
  Country: None (occurrence: None)
  Receive Date: 20101028
  Receipt Date: 20101028
  Transmission Date: 20110411
  Serious: Yes (Life-Threatening, Hospitalization, Other)
  Sender: FDA-Public Use
  Company Number: None

PATIENT
  Age: 45 Year
  Sex: Female
  Weight: 68.0396 kg

DRUGS (4)
  1. NUVARING [Suspect]
     Indication: BLOOD IRON DECREASED
     Dosage: .120-.015 NUVA RING INSERTED  INSERT FOR 21 DAYS VAG
     Route: 067
     Dates: start: 20100421, end: 20100724
  2. NUVARING [Suspect]
     Indication: FATIGUE
     Dosage: .120-.015 NUVA RING INSERTED  INSERT FOR 21 DAYS VAG
     Route: 067
     Dates: start: 20100421, end: 20100724
  3. NUVARING [Suspect]
     Indication: MENOPAUSE
     Dosage: .120-.015 NUVA RING INSERTED  INSERT FOR 21 DAYS VAG
     Route: 067
     Dates: start: 20100421, end: 20100724
  4. NUVARING [Suspect]
     Indication: POLYMENORRHOEA
     Dosage: .120-.015 NUVA RING INSERTED  INSERT FOR 21 DAYS VAG
     Route: 067
     Dates: start: 20100421, end: 20100724

REACTIONS (1)
  - THROMBOSIS [None]
